FAERS Safety Report 5894625-4 (Version None)
Quarter: 2008Q3

REPORT INFORMATION
  Report Type: 
  Country: None (occurrence: None)
  Receive Date: 20080922
  Receipt Date: 20080909
  Transmission Date: 20090109
  Serious: Yes (Death)
  Sender: FDA-Public Use
  Company Number: 2008AL010490

PATIENT
  Age: 77 Year
  Sex: Female

DRUGS (1)
  1. LIDOCAINE HCL [Suspect]
     Dosage: ; X1; IV
     Route: 042
     Dates: start: 20060901, end: 20060901

REACTIONS (5)
  - CARDIAC DISORDER [None]
  - CONVULSION [None]
  - DRUG PRESCRIBING ERROR [None]
  - DRUG TOXICITY [None]
  - RENAL FAILURE [None]
